FAERS Safety Report 8880063 (Version 1)
Quarter: 2012Q4

REPORT INFORMATION
  Report Type: 
  Country: US (occurrence: US)
  Receive Date: 20121031
  Receipt Date: 20121031
  Transmission Date: 20130627
  Serious: No
  Sender: FDA-Public Use
  Company Number: US-ASTRAZENECA-2012SE76551

PATIENT
  Age: 52 Year
  Sex: Male
  Weight: 180 kg

DRUGS (7)
  1. SEROQUEL XR [Suspect]
     Indication: BIPOLAR DISORDER
     Route: 048
  2. SEROQUEL XR [Suspect]
     Indication: DEPRESSION
     Route: 048
  3. SEROQUEL XR [Suspect]
     Indication: SLEEP DISORDER
     Route: 048
  4. SEROQUEL XR [Suspect]
     Indication: BIPOLAR DISORDER
     Dosage: 300MG DAILY PLUS 150MG AT NIGHT
     Route: 048
  5. SEROQUEL XR [Suspect]
     Indication: DEPRESSION
     Dosage: 300MG DAILY PLUS 150MG AT NIGHT
     Route: 048
  6. SEROQUEL XR [Suspect]
     Indication: SLEEP DISORDER
     Dosage: 300MG DAILY PLUS 150MG AT NIGHT
     Route: 048
  7. PRISTIQUE [Concomitant]
     Indication: DEPRESSION
     Route: 048
     Dates: start: 2010

REACTIONS (4)
  - Tinnitus [Unknown]
  - Somnolence [Unknown]
  - Intentional drug misuse [Unknown]
  - Off label use [Unknown]
